FAERS Safety Report 5528581-5 (Version None)
Quarter: 2007Q4

REPORT INFORMATION
  Report Type: 
  Country: None (occurrence: None)
  Receive Date: 20071126
  Receipt Date: 20071116
  Transmission Date: 20080405
  Serious: Yes (Hospitalization)
  Sender: FDA-Public Use
  Company Number: 2007SP023177

PATIENT
  Sex: Male

DRUGS (1)
  1. PROVENTIL-HFA [Suspect]
     Indication: DRUG USE FOR UNKNOWN INDICATION
     Dosage: ; PO
     Route: 048

REACTIONS (3)
  - FOREIGN BODY TRAUMA [None]
  - OESOPHAGEAL OBSTRUCTION [None]
  - PHARMACEUTICAL PRODUCT COMPLAINT [None]
